FAERS Safety Report 9245421 (Version 1)
Quarter: 2013Q2

REPORT INFORMATION
  Report Type: Spontaneous
  Country: US (occurrence: US)
  Receive Date: 20130422
  Receipt Date: 20130422
  Transmission Date: 20140414
  Serious: Yes (Life-Threatening)
  Sender: FDA-Public Use
  Company Number: US-ASTELLAS-2012US010913

PATIENT
  Age: 78 Year
  Sex: Female

DRUGS (3)
  1. LEXISCAN [Suspect]
     Indication: SCAN MYOCARDIAL PERFUSION
     Dosage: 0.4 MG, TOTAL DOSE
     Route: 042
     Dates: start: 20111227, end: 20111227
  2. TECHNETIUM (99M TC) SESTAMIBI [Concomitant]
     Indication: SCAN MYOCARDIAL PERFUSION
     Dosage: 11.28 MCI, TOTAL DOSE
     Route: 042
     Dates: start: 20111227, end: 20111227
  3. TECHNETIUM (99M TC) SESTAMIBI [Concomitant]
     Dosage: 35.7 MCI, TOTAL DOSE
     Route: 042
     Dates: start: 20111227, end: 20111227

REACTIONS (3)
  - Cardiac arrest [Recovered/Resolved]
  - Respiratory arrest [Recovered/Resolved]
  - Bradycardia [Unknown]
